FAERS Safety Report 21993693 (Version 1)
Quarter: 2023Q1

REPORT INFORMATION
  Report Type: Spontaneous
  Country: ES (occurrence: ES)
  Receive Date: 20230215
  Receipt Date: 20230215
  Transmission Date: 20230417
  Serious: Yes (Hospitalization, Other)
  Sender: FDA-Public Use
  Company Number: None

PATIENT
  Age: 76 Year
  Sex: Female

DRUGS (4)
  1. BEVACIZUMAB [Suspect]
     Active Substance: BEVACIZUMAB
     Indication: Colorectal cancer
     Dosage: 225 MG (5MG/M2)
     Route: 040
     Dates: start: 20220803, end: 20221016
  2. FLUOROURACIL [Suspect]
     Active Substance: FLUOROURACIL
     Indication: Colorectal cancer
     Dosage: 536 MG (400 MG/M2)/ 5MG/ML/3216 MG /2400 MG/M2)
     Route: 040
     Dates: start: 20220803, end: 20221016
  3. OXALIPLATIN [Suspect]
     Active Substance: OXALIPLATIN
     Indication: Colorectal cancer
     Dosage: 113.9 MG (85 MG/M2) REDUCTION OF THE 80% TO 91.12 MG (68 MG/M2)
     Route: 040
     Dates: start: 20220803, end: 20221016
  4. LEUCOVORIN [Concomitant]
     Active Substance: LEUCOVORIN
     Indication: Colorectal cancer
     Dosage: 536MILIGRAMOS (400MG/M2)
     Route: 040
     Dates: start: 20220803, end: 20221016

REACTIONS (2)
  - Anaemia [Recovered/Resolved]
  - Neutropenia [Recovered/Resolved]

NARRATIVE: CASE EVENT DATE: 20220801
